FAERS Safety Report 7114116-2 (Version None)
Quarter: 2010Q4

REPORT INFORMATION
  Report Type: 
  Country: None (occurrence: None)
  Receive Date: 20101119
  Receipt Date: 20101116
  Transmission Date: 20110411
  Serious: Yes (Life-Threatening, Hospitalization)
  Sender: FDA-Public Use
  Company Number: JP-PFIZER INC-2010136228

PATIENT
  Age: 62 Year
  Sex: Male
  Weight: 58.3 kg

DRUGS (7)
  1. SUTENT [Suspect]
     Indication: RENAL CELL CARCINOMA
     Dosage: 50 MG, 1X/DAY
     Route: 048
     Dates: start: 20091204, end: 20101001
  2. LOXONIN [Suspect]
     Indication: HEADACHE
     Dosage: 60 MG, AS NEEDED
     Route: 048
     Dates: start: 20101013, end: 20101015
  3. CALONAL [Suspect]
     Indication: ABDOMINAL PAIN
     Dosage: 200 MG, AS NEEDED
     Route: 048
     Dates: start: 20101015, end: 20101015
  4. TAGAMET [Concomitant]
     Indication: GASTRITIS
     Dosage: 20 MG, 2X/DAY
     Route: 048
     Dates: start: 20080722, end: 20101015
  5. DIHYDROCODEINE PHOSPHATE [Concomitant]
     Indication: COUGH
     Dosage: 10 MG, 3X/DAY
     Dates: start: 20101010, end: 20101015
  6. MAG-LAX [Concomitant]
     Indication: CONSTIPATION
     Dosage: 330 MG, 3X/DAY
     Dates: start: 20101010, end: 20101015
  7. MEDICON [Concomitant]
     Indication: COUGH
     Dosage: 15 MG, AS NEEDED
     Dates: start: 20101013, end: 20101015

REACTIONS (3)
  - DUODENAL PERFORATION [None]
  - HEADACHE [None]
  - PLEURAL EFFUSION [None]
